FAERS Safety Report 9689001 (Version 2)
Quarter: 2013Q4

REPORT INFORMATION
  Report Type: Spontaneous
  Country: CH (occurrence: None)
  Receive Date: 20131112
  Receipt Date: 20131202
  Transmission Date: 20140711
  Serious: Yes (Hospitalization)
  Sender: FDA-Public Use
  Company Number: 20130618

PATIENT
  Age: 80 Year
  Sex: Male
  Weight: 112 kg

DRUGS (10)
  1. VENOFER [Suspect]
     Indication: IRON DEFICIENCY ANAEMIA
     Dosage: 500 MG FRACTIONATED
     Dates: start: 20130828, end: 20130925
  2. ALFACALCIDOL [Concomitant]
  3. BISOPROLOL [Concomitant]
  4. FLUVASTATIN [Concomitant]
  5. CO-CODAMOL [Concomitant]
  6. QUININE [Concomitant]
  7. BIMATOPREST [Concomitant]
  8. EZETIMIBE [Concomitant]
  9. PHOSEX [Concomitant]
  10. ASPIRIN [Concomitant]

REACTIONS (10)
  - Arthralgia [None]
  - General physical health deterioration [None]
  - Arthritis bacterial [None]
  - White blood cell count increased [None]
  - Dialysis [None]
  - Soft tissue disorder [None]
  - Haemoglobin decreased [None]
  - Staphylococcal bacteraemia [None]
  - Local swelling [None]
  - Venous occlusion [None]
